FAERS Safety Report 18177719 (Version 1)
Quarter: 2020Q3

REPORT INFORMATION
  Report Type: Spontaneous
  Country: DE (occurrence: DE)
  Receive Date: 20200821
  Receipt Date: 20200821
  Transmission Date: 20201103
  Serious: Yes (Other)
  Sender: FDA-Public Use
  Company Number: DE-PFIZER INC-2020320590

PATIENT
  Age: 54 Year
  Sex: Female
  Weight: 70 kg

DRUGS (2)
  1. SUTENT [Suspect]
     Active Substance: SUNITINIB MALATE
     Indication: GASTROINTESTINAL STROMAL TUMOUR
     Dosage: 37.5 MG, CYCLIC (12 DAY INTAKE / 4 DAYS BREAK)
     Route: 048
     Dates: start: 20180731, end: 20200604
  2. SUTENT [Suspect]
     Active Substance: SUNITINIB MALATE
     Dosage: 37.5 MG, CYCLIC (7 DAYS INTAKE / 7 DAYS BREAK)
     Route: 048
     Dates: start: 202007

REACTIONS (8)
  - Lipids increased [Recovered/Resolved]
  - Hypertension [Unknown]
  - Diarrhoea [Unknown]
  - Hypothyroidism [Unknown]
  - Nephrotic syndrome [Recovering/Resolving]
  - Proteinuria [Unknown]
  - Generalised oedema [Unknown]
  - Palmar-plantar erythrodysaesthesia syndrome [Unknown]

NARRATIVE: CASE EVENT DATE: 201910
